FAERS Safety Report 22296216 (Version 1)
Quarter: 2023Q2

REPORT INFORMATION
  Report Type: Report from Study
  Country: GB (occurrence: GB)
  Receive Date: 20230508
  Receipt Date: 20230508
  Transmission Date: 20230721
  Serious: Yes (Death)
  Sender: FDA-Public Use
  Company Number: GB-AGUETTANT-2023000552

PATIENT
  Age: 64 Year
  Sex: Female

DRUGS (14)
  1. WATER FOR INJECTION [Suspect]
     Active Substance: WATER
     Dosage: 70 ML
     Dates: start: 20230422
  2. WATER [Suspect]
     Active Substance: WATER
     Dosage: 2713.20 ML
     Dates: start: 20230422
  3. SODIUM CHLORIDE [Suspect]
     Active Substance: SODIUM CHLORIDE
     Dosage: 23.5% AT 357 ML
     Dates: start: 20230422
  4. DEXTROSE [Suspect]
     Active Substance: DEXTROSE\DEXTROSE MONOHYDRATE
     Dosage: 50% BP AT 7000 ML
     Dates: start: 20230422
  5. CALCIUM CHLORIDE [Suspect]
     Active Substance: CALCIUM CHLORIDE
     Dosage: 35 ML
     Dates: start: 20230422
  6. POTASSIUM CHLORIDE [Suspect]
     Active Substance: POTASSIUM CHLORIDE
     Dosage: 93.80 ML
     Dates: start: 20230422
  7. CERNEVIT [Suspect]
     Active Substance: VITAMINS
     Dosage: 70 ML
     Dates: start: 20230422
  8. MAGNESIUM SULFATE [Suspect]
     Active Substance: MAGNESIUM SULFATE
     Dosage: 49.3% BAG AT  28 ML
     Dates: start: 20230422
  9. IRON\MINERALS\POTASSIUM IOD\SODIUM FLUORIDE\SODIUM MOLYBDATE\SODIUM SE [Suspect]
     Active Substance: IRON\MINERALS\POTASSIUM IOD\SODIUM FLUORIDE\SODIUM MOLYBDATE\SODIUM SELENITE\ZINC
     Dosage: 140 ML
     Dates: start: 20230422
  10. SMOFLIPID [Suspect]
     Active Substance: FISH OIL\MEDIUM-CHAIN TRIGLYCERIDES\OLIVE OIL\SOYBEAN OIL
     Dosage: 2300 ML
     Dates: start: 20230422
  11. SMOFLIPID [Suspect]
     Active Substance: FISH OIL\MEDIUM-CHAIN TRIGLYCERIDES\OLIVE OIL\SOYBEAN OIL
     Dosage: 500 ML
     Dates: start: 20230422
  12. SODIUM GLYCEROPHOSPHATE [Suspect]
     Active Substance: SODIUM GLYCEROPHOSPHATE
     Dosage: 126 ML
     Dates: start: 20230422
  13. SYNTHAMIN [Suspect]
     Active Substance: AMINO ACIDS
     Dosage: 17 EF AT 7637 ML
     Dates: start: 20230422
  14. OXYGEN [Suspect]
     Active Substance: OXYGEN
     Dosage: 28000 ML
     Dates: start: 20230422

REACTIONS (2)
  - Death [Fatal]
  - Pain [Unknown]

NARRATIVE: CASE EVENT DATE: 20230423
